FAERS Safety Report 10452868 (Version 1)
Quarter: 2014Q3

REPORT INFORMATION
  Report Type: Spontaneous
  Country: US (occurrence: US)
  Receive Date: 20140915
  Receipt Date: 20140915
  Transmission Date: 20150326
  Serious: Yes (Death, Other)
  Sender: FDA-Public Use
  Company Number: US-ABBVIE-14P-163-1282378-00

PATIENT
  Age: 54 Year

DRUGS (1)
  1. ANDROGEL [Suspect]
     Active Substance: TESTOSTERONE
     Indication: BLOOD TESTOSTERONE DECREASED
     Route: 062
     Dates: start: 20120104

REACTIONS (13)
  - Anhedonia [Unknown]
  - Anxiety [Unknown]
  - Economic problem [Unknown]
  - Impaired work ability [Unknown]
  - Pain [Unknown]
  - Emotional distress [Unknown]
  - Social problem [Unknown]
  - Injury [Unknown]
  - Cardiac arrest [Fatal]
  - Fear [Unknown]
  - Disability [Unknown]
  - Myocardial infarction [Fatal]
  - Deformity [Unknown]

NARRATIVE: CASE EVENT DATE: 20120927
